FAERS Safety Report 9517413 (Version 1)
Quarter: 2013Q1

REPORT INFORMATION
  Report Type: Spontaneous
  Country: US (occurrence: None)
  Receive Date: 20130305
  Receipt Date: 20130305
  Transmission Date: 20140127
  Serious: Yes (Other)
  Sender: FDA-Public Use
  Company Number: 163-21880-12040924

PATIENT
  Age: 76 Year
  Sex: Female

DRUGS (3)
  1. REVLIMID [Suspect]
     Indication: PLASMA CELL MYELOMA
     Dosage: 21 IN 28 DAYS
     Route: 048
     Dates: start: 20090506
  2. MULTIVITAMIN (MULTIVITAMINS) (UNKNOWN) [Concomitant]
  3. DONEPEZIL (DONEPEZIL) (UNKNOWN) [Concomitant]

REACTIONS (10)
  - Diarrhoea [None]
  - Oedema peripheral [None]
  - Fatigue [None]
  - Neuropathy peripheral [None]
  - Pruritus [None]
  - Muscle spasms [None]
  - Pulmonary congestion [None]
  - Productive cough [None]
  - Rash [None]
  - Contusion [None]
